FAERS Safety Report 8992122 (Version 1)
Quarter: 2012Q4

REPORT INFORMATION
  Report Type: Report from Study
  Country: BR (occurrence: BR)
  Receive Date: 20121231
  Receipt Date: 20121231
  Transmission Date: 20130627
  Serious: Yes (Other)
  Sender: FDA-Public Use
  Company Number: BR-ROCHE-1173243

PATIENT
  Sex: Female
  Weight: 103 kg

DRUGS (3)
  1. RITUXIMAB [Suspect]
     Indication: PRODUCT USED FOR UNKNOWN INDICATION
     Route: 065
     Dates: start: 20101201, end: 20120717
  2. CITALOPRAM [Concomitant]
     Route: 065
  3. TOPIRAMATE [Concomitant]
     Route: 065

REACTIONS (2)
  - Cutaneous lupus erythematosus [Unknown]
  - Motor dysfunction [Unknown]
